FAERS Safety Report 5018651-2 (Version None)
Quarter: 2006Q2

REPORT INFORMATION
  Report Type: 
  Country: None (occurrence: None)
  Receive Date: 20060414
  Receipt Date: 20051230
  Transmission Date: 20061013
  Serious: No
  Sender: FDA-Public Use
  Company Number: 2006SP000031

PATIENT
  Sex: Male

DRUGS (1)
  1. LUNESTA [Suspect]
     Indication: SLEEP DISORDER DUE TO GENERAL MEDICAL CONDITION, INSOMNIA TYPE
     Dosage: ORAL
     Route: 048
     Dates: start: 20050101

REACTIONS (2)
  - HEADACHE [None]
  - INSOMNIA [None]
